FAERS Safety Report 7226941-8 (Version None)
Quarter: 2011Q1

REPORT INFORMATION
  Report Type: 
  Country: None (occurrence: None)
  Receive Date: 20110114
  Receipt Date: 20100405
  Transmission Date: 20110831
  Serious: No
  Sender: FDA-Public Use
  Company Number: US-PFIZER INC-2010043604

PATIENT
  Sex: Female
  Weight: 73 kg

DRUGS (1)
  1. SOMAVERT [Suspect]
     Dosage: 30 MG, DAILY

REACTIONS (1)
  - DRUG INEFFECTIVE [None]
